FAERS Safety Report 16822422 (Version 1)
Quarter: 2019Q3

REPORT INFORMATION
  Report Type: Spontaneous
  Country: DK (occurrence: DK)
  Receive Date: 20190918
  Receipt Date: 20190918
  Transmission Date: 20191005
  Serious: Yes (Other)
  Sender: FDA-Public Use
  Company Number: DK-TEVA-2019-DK-1110421

PATIENT
  Sex: Male

DRUGS (1)
  1. AEROBEC AUTOHALER 100 MCG/MG [Suspect]
     Active Substance: BECLOMETHASONE
     Dosage: 200 DOSES
     Route: 065

REACTIONS (2)
  - Pneumonia [Unknown]
  - Drug ineffective [Unknown]
